FAERS Safety Report 24565221 (Version 1)
Quarter: 2024Q4

REPORT INFORMATION
  Report Type: Spontaneous
  Country: US (occurrence: None)
  Receive Date: 20241029
  Receipt Date: 20241029
  Transmission Date: 20250114
  Serious: No
  Sender: Public
  Company Number: None

PATIENT
  Age: 68 Year
  Sex: Female
  Weight: 50.8 kg

DRUGS (1)
  1. TERIPARATIDE [Suspect]
     Active Substance: TERIPARATIDE
     Indication: Psoriatic arthropathy
     Dosage: OTHER STRENGTH : 600MCG/2.4ML;?FREQUENCY : DAILY;?
     Route: 058
     Dates: start: 202410

REACTIONS (1)
  - Bronchitis [None]
